FAERS Safety Report 17713054 (Version 2)
Quarter: 2020Q2

REPORT INFORMATION
  Report Type: Report from Study
  Country: JP (occurrence: JP)
  Receive Date: 20200427
  Receipt Date: 20200520
  Transmission Date: 20200714
  Serious: Yes (Disabling)
  Sender: FDA-Public Use
  Company Number: JP-BIOGEN-2020BI00867765

PATIENT
  Age: 4 Year
  Sex: Male
  Weight: 12.4 kg

DRUGS (10)
  1. SPINRAZA [Suspect]
     Active Substance: NUSINERSEN
     Indication: SPINAL MUSCULAR ATROPHY
     Route: 037
  2. MAGNESIUM OXIDE. [Concomitant]
     Active Substance: MAGNESIUM OXIDE
     Indication: SPINAL MUSCULAR ATROPHY
     Dosage: 0.1-0.2 MG
     Route: 050
     Dates: start: 20190418
  3. MUCODYNE [Concomitant]
     Active Substance: CARBOCYSTEINE
     Indication: SPINAL MUSCULAR ATROPHY
     Route: 050
  4. KLARICID [Concomitant]
     Active Substance: CLARITHROMYCIN
     Indication: PROPHYLAXIS
     Route: 050
     Dates: start: 20181018
  5. MIDAZOLAM. [Concomitant]
     Active Substance: MIDAZOLAM
     Indication: ANAESTHESIA PROCEDURE
     Dosage: 2-4 MG
     Route: 042
  6. KETALAR [Concomitant]
     Active Substance: KETAMINE HYDROCHLORIDE
     Indication: ANAESTHESIA PROCEDURE
     Dosage: 5-10 MG
     Route: 042
  7. MUCOSOLVAN DS FOR PEDIATRIC [Concomitant]
     Indication: SPINAL MUSCULAR ATROPHY
     Route: 050
  8. TALTIRELIN OD [Concomitant]
     Indication: SPINAL MUSCULAR ATROPHY
     Route: 050
  9. SPINRAZA [Suspect]
     Active Substance: NUSINERSEN
     Route: 037
     Dates: start: 20200213
  10. MIYA-BM [Concomitant]
     Active Substance: CLOSTRIDIUM BUTYRICUM SPORES STRAIN M-55
     Indication: PROPHYLAXIS
     Route: 050
     Dates: start: 20181018

REACTIONS (1)
  - Encephalopathy [Not Recovered/Not Resolved]

NARRATIVE: CASE EVENT DATE: 20200310
